FAERS Safety Report 4457391-5 (Version None)
Quarter: 2004Q3

REPORT INFORMATION
  Report Type: 
  Country: None (occurrence: None)
  Receive Date: 20040922
  Receipt Date: 20040915
  Transmission Date: 20050211
  Serious: Yes (Hospitalization, Other)
  Sender: FDA-Public Use
  Company Number: USA040977492

PATIENT
  Sex: Male

DRUGS (2)
  1. HUMULIN R [Suspect]
     Indication: DIABETES MELLITUS
     Dates: end: 20010101
  2. HUMULIN N [Suspect]
     Indication: DIABETES MELLITUS
     Dates: end: 20010101

REACTIONS (2)
  - ARTERIAL OCCLUSIVE DISEASE [None]
  - SURGERY [None]
